FAERS Safety Report 7591966-X (Version None)
Quarter: 2011Q3

REPORT INFORMATION
  Report Type: 
  Country: None (occurrence: None)
  Receive Date: 20110701
  Receipt Date: 20110701
  Transmission Date: 20111222
  Serious: Yes (Other)
  Sender: FDA-Public Use
  Company Number: None

PATIENT
  Age: 54 Year
  Sex: Male
  Weight: 95.2554 kg

DRUGS (1)
  1. BYSTOLIC [Suspect]
     Indication: BLOOD PRESSURE
     Dosage: 5 MG 1 DAILY ORAL
     Route: 048
     Dates: start: 20110515

REACTIONS (6)
  - DIZZINESS [None]
  - PARAESTHESIA [None]
  - INSOMNIA [None]
  - VISUAL IMPAIRMENT [None]
  - HEADACHE [None]
  - MOOD ALTERED [None]
